FAERS Safety Report 5408409-4 (Version None)
Quarter: 2007Q3

REPORT INFORMATION
  Report Type: 
  Country: None (occurrence: None)
  Receive Date: 20070806
  Receipt Date: 20070720
  Transmission Date: 20080115
  Serious: Yes (Life-Threatening, Hospitalization)
  Sender: FDA-Public Use
  Company Number: DSA_30138_2007

PATIENT
  Sex: Female

DRUGS (3)
  1. TAVOR /00273201/ (TAVOR) 2MG [Suspect]
     Dosage: 6 MG 1X ORAL
     Route: 048
     Dates: start: 20070618, end: 20070618
  2. NOCTAMID (NOCTAMID) (NOT SPECIFIED) [Suspect]
     Dosage: 4 MG 1X ORAL
     Route: 048
     Dates: start: 20070618, end: 20070618
  3. PARACETAMOL (PARACETAMOL) 500 MG [Suspect]
     Dosage: 22 G 1X ORAL
     Route: 048
     Dates: start: 20070618, end: 20070618

REACTIONS (4)
  - GASTROINTESTINAL SOUNDS ABNORMAL [None]
  - MULTIPLE DRUG OVERDOSE [None]
  - NAUSEA [None]
  - SUICIDE ATTEMPT [None]
